FAERS Safety Report 4397664-8 (Version None)
Quarter: 2004Q3

REPORT INFORMATION
  Report Type: 
  Country: None (occurrence: None)
  Receive Date: 20040712
  Receipt Date: 20040630
  Transmission Date: 20050211
  Serious: Yes (Disabling)
  Sender: FDA-Public Use
  Company Number: 2004IM000712

PATIENT
  Age: 53 Year
  Sex: Female

DRUGS (6)
  1. ADVAFERON (A643_INTERFERON ALFACON-1) [Suspect]
     Indication: HEPATITIS C
     Dosage: 12 MU; QD; INTRAMUSCULAR
     Route: 030
     Dates: start: 20040507, end: 20040616
  2. RIBAVIRIN [Concomitant]
  3. BERIZYM [Concomitant]
  4. REBAMIPIDE [Concomitant]
  5. PIRENZEPINE DIHYDROCHLORIDE [Concomitant]
  6. FAMOTIDINE [Concomitant]

REACTIONS (3)
  - ELECTROCARDIOGRAM ST SEGMENT DEPRESSION [None]
  - FACE OEDEMA [None]
  - RHABDOMYOLYSIS [None]
